FAERS Safety Report 5391930-5 (Version None)
Quarter: 2007Q3

REPORT INFORMATION
  Report Type: 
  Country: None (occurrence: None)
  Receive Date: 20070720
  Receipt Date: 20070713
  Transmission Date: 20080115
  Serious: Yes (Other)
  Sender: FDA-Public Use
  Company Number: PHEH2006US03316

PATIENT
  Age: 52 Year
  Sex: Female
  Weight: 52.154 kg

DRUGS (4)
  1. PREMARIN [Suspect]
     Indication: MENOPAUSAL SYMPTOMS
     Route: 048
     Dates: start: 19830101, end: 19970101
  2. PROVERA [Suspect]
     Indication: MENOPAUSAL SYMPTOMS
     Dates: start: 19830101, end: 19970101
  3. ESTRADERM [Suspect]
     Indication: MENOPAUSAL SYMPTOMS
     Dosage: UNK, UNK
     Route: 062
     Dates: start: 19960403, end: 19960501
  4. NORLUTATE [Suspect]
     Indication: MENOPAUSE
     Dates: start: 19881101, end: 19881201

REACTIONS (25)
  - BASAL CELL CARCINOMA [None]
  - BIOPSY BREAST ABNORMAL [None]
  - BLOOD CHOLESTEROL INCREASED [None]
  - BLOOD TRIGLYCERIDES INCREASED [None]
  - BREAST CANCER [None]
  - BREAST CANCER IN SITU [None]
  - BREAST MICROCALCIFICATION [None]
  - BREAST RECONSTRUCTION [None]
  - CARDIAC PACEMAKER REPLACEMENT [None]
  - COLON POLYPECTOMY [None]
  - COLONIC POLYP [None]
  - ENDOMETRIAL HYPERTROPHY [None]
  - HAEMATURIA [None]
  - HYPOAESTHESIA [None]
  - LYMPHOEDEMA [None]
  - MASTECTOMY [None]
  - MUSCULOSKELETAL STIFFNESS [None]
  - OESTROGEN RECEPTOR ASSAY POSITIVE [None]
  - PAINFUL DEFAECATION [None]
  - PROGESTERONE RECEPTOR ASSAY POSITIVE [None]
  - UTERINE DILATION AND CURETTAGE [None]
  - UTERINE HAEMORRHAGE [None]
  - UTERINE POLYP [None]
  - UTERINE POLYPECTOMY [None]
  - VAGINAL HAEMORRHAGE [None]
